FAERS Safety Report 9338745 (Version 2)
Quarter: 2013Q3

REPORT INFORMATION
  Report Type: Spontaneous
  Country: BR (occurrence: BR)
  Receive Date: 20130610
  Receipt Date: 20130805
  Transmission Date: 20140515
  Serious: Yes (Other)
  Sender: FDA-Public Use
  Company Number: BR-PFIZER INC-2013172501

PATIENT
  Age: 80 Year
  Sex: Female
  Weight: 74 kg

DRUGS (7)
  1. LYRICA [Suspect]
     Dosage: ONE TABLET OF 150 MG DAILY
     Route: 048
     Dates: start: 20090606
  2. ATENOLOL [Concomitant]
     Indication: HYPERTENSION
     Dosage: 1 TABLET (UNSPECIFIED STRENGTH) DAILY
     Dates: start: 2007
  3. BENICAR [Concomitant]
     Dosage: 1 TABLET (STRENGTH 40/10, UNSPECIFIED UNIT)) DAILY
     Dates: start: 2009
  4. DIAZEPAM [Concomitant]
     Indication: SLEEP DISORDER
     Dosage: 2 TABLETS (UNSPECIFIED STRENGTH) DAILY
     Dates: start: 1993
  5. DIAZEPAM [Concomitant]
     Indication: RELAXATION THERAPY
  6. LOSARTAN [Concomitant]
     Indication: HYPERTENSION
     Dosage: 2 TABLETS (UNSPECIFIED STRENGTH) DAILY
     Dates: start: 201305
  7. BI-PROFENID [Concomitant]
     Indication: PAIN
     Dosage: 2 TABLETS DAILY
     Dates: start: 201305

REACTIONS (5)
  - Intervertebral disc protrusion [Recovered/Resolved with Sequelae]
  - Wheelchair user [Not Recovered/Not Resolved]
  - Walking disability [Not Recovered/Not Resolved]
  - Pain [Unknown]
  - Arthralgia [Unknown]
